FAERS Safety Report 6993785-1 (Version None)
Quarter: 2010Q3

REPORT INFORMATION
  Report Type: 
  Country: None (occurrence: None)
  Receive Date: 20100917
  Receipt Date: 20100503
  Transmission Date: 20110219
  Serious: Yes (Hospitalization, Other)
  Sender: FDA-Public Use
  Company Number: US-ASTRAZENECA-2010SE20115

PATIENT
  Age: 35 Year
  Sex: Male

DRUGS (11)
  1. SEROQUEL XR [Suspect]
     Route: 048
  2. ANTABUSE [Concomitant]
     Route: 065
  3. TOPRIMATE [Concomitant]
     Route: 065
  4. HYDROXYZINE [Concomitant]
     Route: 065
  5. LAMICTAL [Concomitant]
     Route: 065
  6. ADHD MEDICATIONS [Concomitant]
     Route: 065
  7. ANTIDEPRESSANTS [Concomitant]
     Route: 065
  8. ANTIPSYCHOTICS [Concomitant]
     Route: 065
  9. ANTISEIZURE DRUG [Concomitant]
  10. MULTI-VITAMIN [Concomitant]
     Route: 065
  11. VITAMIN D [Concomitant]
     Route: 065

REACTIONS (7)
  - ANGER [None]
  - CONVULSION [None]
  - CRYING [None]
  - DRUG DOSE OMISSION [None]
  - FEELING OF DESPAIR [None]
  - STRESS [None]
  - SUICIDE ATTEMPT [None]
